FAERS Safety Report 8272234-X (Version None)
Quarter: 2012Q2

REPORT INFORMATION
  Report Type: 
  Country: None (occurrence: None)
  Receive Date: 20120410
  Receipt Date: 20120328
  Transmission Date: 20120825
  Serious: Yes (Other)
  Sender: FDA-Public Use
  Company Number: PHHY2012DE025841

PATIENT
  Sex: Male

DRUGS (5)
  1. ALLOPURINOL [Concomitant]
     Indication: HYPERURICAEMIA
     Dosage: 1 DF, QD
     Route: 048
  2. AMLODIPINE/VALSARTAN/HYDROCHLOROTHIAZIDE [Suspect]
     Indication: HYPERTENSION
     Dosage: 1 DF (VALS 160 MG, AMLO 05 MG, HYDR 12.5 MG), QD
     Route: 048
     Dates: start: 20101216, end: 20120315
  3. HYDROCHLOROTHIAZIDE [Concomitant]
  4. AMLODIPINE [Concomitant]
  5. VALSARTAN [Concomitant]

REACTIONS (3)
  - BLISTER [None]
  - DRUG INTOLERANCE [None]
  - RASH PRURITIC [None]
